FAERS Safety Report 4714113-8 (Version None)
Quarter: 2005Q3

REPORT INFORMATION
  Report Type: 
  Country: None (occurrence: None)
  Receive Date: 20050712
  Receipt Date: 20050627
  Transmission Date: 20060218
  Serious: Yes (Hospitalization)
  Sender: FDA-Public Use
  Company Number: US_0507119685

PATIENT
  Age: 58 Year
  Sex: Male

DRUGS (6)
  1. ALIMTA [Suspect]
     Indication: DISEASE PROGRESSION
     Dosage: 750 MG OTHER
     Route: 050
     Dates: start: 20050616, end: 20050616
  2. ALIMTA [Suspect]
     Indication: METASTASES TO LIVER
     Dosage: 750 MG OTHER
     Route: 050
     Dates: start: 20050616, end: 20050616
  3. ALIMTA [Suspect]
     Indication: PANCREATIC CARCINOMA METASTATIC
     Dosage: 750 MG OTHER
     Route: 050
     Dates: start: 20050616, end: 20050616
  4. VITAMIN B-12 [Concomitant]
  5. FOLIC ACID [Concomitant]
  6. DEXAMETHASONE [Concomitant]

REACTIONS (11)
  - ACUTE PULMONARY OEDEMA [None]
  - BLOOD PRESSURE DECREASED [None]
  - DIALYSIS [None]
  - DISORIENTATION [None]
  - LEUKOPENIA [None]
  - NEUTROPHIL COUNT DECREASED [None]
  - OEDEMA PERIPHERAL [None]
  - OLIGURIA [None]
  - PO2 DECREASED [None]
  - PYREXIA [None]
  - RENAL FAILURE [None]
